FAERS Safety Report 7633211-2 (Version None)
Quarter: 2011Q3

REPORT INFORMATION
  Report Type: 
  Country: None (occurrence: None)
  Receive Date: 20110725
  Receipt Date: 20110712
  Transmission Date: 20111222
  Serious: Yes (Other)
  Sender: FDA-Public Use
  Company Number: FR-ROCHE-784755

PATIENT
  Sex: Female
  Weight: 47.4 kg

DRUGS (4)
  1. PEGINTERFERON ALFA-2A [Suspect]
     Route: 058
     Dates: start: 20110419
  2. SERTRALINE HYDROCHLORIDE [Suspect]
     Route: 065
     Dates: start: 20060101
  3. NILOTINIB [Suspect]
     Route: 048
     Dates: start: 20110517
  4. SERTRALINE HYDROCHLORIDE [Suspect]
     Route: 065
     Dates: start: 20110616

REACTIONS (1)
  - CHOLESTASIS [None]
